FAERS Safety Report 6602201-0 (Version None)
Quarter: 2010Q1

REPORT INFORMATION
  Report Type: 
  Country: None (occurrence: None)
  Receive Date: 20100225
  Receipt Date: 20100217
  Transmission Date: 20100710
  Serious: Yes (Other)
  Sender: FDA-Public Use
  Company Number: JP-PFIZER INC-2009294876

PATIENT
  Age: 61 Year
  Sex: Female

DRUGS (3)
  1. XALATAN [Suspect]
     Indication: INTRAOCULAR PRESSURE INCREASED
     Dosage: 1 DROP, 1X/DAY IN BOTH EYES
     Route: 031
     Dates: start: 20080425, end: 20090131
  2. TRUSOPT [Suspect]
     Indication: INTRAOCULAR PRESSURE INCREASED
     Dosage: 1 DROP 3 TIMES A DAY IN LEFT EYE
     Route: 031
     Dates: start: 20080910, end: 20090131
  3. CRAVIT [Concomitant]
     Dosage: UNK
     Route: 031

REACTIONS (1)
  - INTRAOCULAR PRESSURE INCREASED [None]
